FAERS Safety Report 6253397-4 (Version None)
Quarter: 2009Q3

REPORT INFORMATION
  Report Type: 
  Country: None (occurrence: None)
  Receive Date: 20090701
  Receipt Date: 20090623
  Transmission Date: 20100115
  Serious: Yes (Hospitalization, Other)
  Sender: FDA-Public Use
  Company Number: US-AMGEN-QUU352983

PATIENT
  Sex: Female

DRUGS (1)
  1. ENBREL [Suspect]
     Indication: BEHCET'S SYNDROME
     Route: 058
     Dates: start: 20021210

REACTIONS (15)
  - AMNESIA [None]
  - ATRIAL FIBRILLATION [None]
  - BEHCET'S SYNDROME [None]
  - CARDIAC ABLATION [None]
  - CELLULITIS [None]
  - CONCUSSION [None]
  - FALL [None]
  - FIBROMYALGIA [None]
  - HYSTERECTOMY [None]
  - INJECTION SITE HAEMATOMA [None]
  - INJECTION SITE IRRITATION [None]
  - INJECTION SITE PAIN [None]
  - INJECTION SITE RASH [None]
  - LIGAMENT RUPTURE [None]
  - SKIN LACERATION [None]
